FAERS Safety Report 10235134 (Version 1)
Quarter: 2014Q2

REPORT INFORMATION
  Report Type: Spontaneous
  Country: IT (occurrence: IT)
  Receive Date: 20140613
  Receipt Date: 20140613
  Transmission Date: 20141212
  Serious: Yes (Hospitalization)
  Sender: FDA-Public Use
  Company Number: IT-TEVA-486779ISR

PATIENT
  Age: 37 Year
  Sex: Male

DRUGS (1)
  1. KETOPROFEN [Suspect]
     Indication: DRUG ABUSE
     Route: 048
     Dates: start: 20131020, end: 20131020

REACTIONS (2)
  - Drug abuse [Recovered/Resolved]
  - Haematemesis [Recovered/Resolved]
